FAERS Safety Report 23916943 (Version 1)
Quarter: 2024Q2

REPORT INFORMATION
  Report Type: Spontaneous
  Country: US (occurrence: US)
  Receive Date: 20240529
  Receipt Date: 20240529
  Transmission Date: 20240716
  Serious: Yes (Other)
  Sender: FDA-Public Use
  Company Number: US-BRISTOL-MYERS SQUIBB COMPANY-2024-078772

PATIENT
  Age: 79 Year
  Sex: Male

DRUGS (3)
  1. OPDUALAG [Suspect]
     Active Substance: NIVOLUMAB\RELATLIMAB-RMBW
     Indication: Metastatic malignant melanoma
     Dosage: DOSE : 480 MG / 160 MG;     FREQ : 480 MG / 160 MG EVERY 4 WEEKS?STRENGTH AND PRESENTATION : 240/80
     Dates: start: 20231102
  2. OPDUALAG [Suspect]
     Active Substance: NIVOLUMAB\RELATLIMAB-RMBW
     Dates: start: 20231129
  3. OPDUALAG [Suspect]
     Active Substance: NIVOLUMAB\RELATLIMAB-RMBW
     Dates: start: 20231227

REACTIONS (2)
  - Colitis [Unknown]
  - Metastatic malignant melanoma [Unknown]
